FAERS Safety Report 4637084-1 (Version None)
Quarter: 2005Q2

REPORT INFORMATION
  Report Type: 
  Country: None (occurrence: None)
  Receive Date: 20050325
  Receipt Date: 20041220
  Transmission Date: 20051028
  Serious: Yes (Hospitalization)
  Sender: FDA-Public Use
  Company Number: USA040772255

PATIENT
  Age: 60 Year
  Sex: Female
  Weight: 61 kg

DRUGS (10)
  1. FORTEO [Suspect]
     Indication: OSTEOPOROSIS
     Dosage: 20 UG DAY
     Dates: start: 20040701
  2. PREDNISONE TAB [Concomitant]
  3. CALCIUM GLUCONATE [Concomitant]
  4. COLAZAL (BALSALAZIDE SODIUM) [Concomitant]
  5. PERCOCET [Concomitant]
  6. ZOLOFT [Concomitant]
  7. THEOPYLLINE (THEOPHYLLINE) [Concomitant]
  8. AMARYL [Concomitant]
  9. DURAGESIC (FENTANYL) [Concomitant]
  10. PROTONIX [Concomitant]

REACTIONS (9)
  - ACCIDENTAL OVERDOSE [None]
  - BACK PAIN [None]
  - DYSPNOEA [None]
  - FLUID RETENTION [None]
  - HAEMATURIA [None]
  - MEDICATION ERROR [None]
  - OEDEMA PERIPHERAL [None]
  - PAINFUL RESPIRATION [None]
  - SPINAL COMPRESSION FRACTURE [None]
